FAERS Safety Report 10048892 (Version 2)
Quarter: 2014Q2

REPORT INFORMATION
  Report Type: Spontaneous
  Country: US (occurrence: None)
  Receive Date: 20140327
  Receipt Date: 20140403
  Transmission Date: 20141212
  Serious: Yes (Hospitalization)
  Sender: FDA-Public Use
  Company Number: UTC-045520

PATIENT
  Age: 67 Year
  Sex: Female
  Weight: 112.9 kg

DRUGS (2)
  1. TYVASO [Suspect]
     Indication: PULMONARY ARTERIAL HYPERTENSION
     Route: 055
     Dates: start: 20130404
  2. TRACLEER (BOSENTAN) [Concomitant]

REACTIONS (2)
  - Pneumonia [None]
  - Oxygen saturation decreased [None]
